FAERS Safety Report 6871569-2 (Version None)
Quarter: 2010Q3

REPORT INFORMATION
  Report Type: 
  Country: None (occurrence: None)
  Receive Date: 20100723
  Receipt Date: 20100716
  Transmission Date: 20110219
  Serious: Yes (Other)
  Sender: FDA-Public Use
  Company Number: PHHO2010US11056

PATIENT
  Sex: Female
  Weight: 108.6 kg

DRUGS (1)
  1. ZOLEDRONATE T29581+SOLINF [Suspect]
     Indication: BREAST CANCER
     Dosage: 4 MG
     Route: 042
     Dates: start: 20080807

REACTIONS (5)
  - BUCCAL MUCOSAL ROUGHENING [None]
  - GLOSSODYNIA [None]
  - IMPAIRED HEALING [None]
  - OSTEONECROSIS OF JAW [None]
  - STOMATITIS [None]
